FAERS Safety Report 5636519-5 (Version None)
Quarter: 2008Q1

REPORT INFORMATION
  Report Type: 
  Country: None (occurrence: None)
  Receive Date: 20080225
  Receipt Date: 20080219
  Transmission Date: 20080703
  Serious: Yes (Hospitalization)
  Sender: FDA-Public Use
  Company Number: US-BAXTER-2007BH005445

PATIENT

DRUGS (2)
  1. BUMINATE 5% [Suspect]
     Indication: PLASMAPHERESIS
     Route: 065
     Dates: start: 20070613
  2. BUMINATE 5% [Suspect]
     Indication: GUILLAIN-BARRE SYNDROME
     Route: 065
     Dates: start: 20070613

REACTIONS (6)
  - BACILLUS INFECTION [None]
  - BLOOD TEST ABNORMAL [None]
  - CHILLS [None]
  - HYPERTENSION [None]
  - INFUSION SITE INFLAMMATION [None]
  - PYREXIA [None]
